FAERS Safety Report 10503664 (Version 7)
Quarter: 2015Q2

REPORT INFORMATION
  Report Type: Spontaneous
  Country: JP (occurrence: JP)
  Receive Date: 20141008
  Receipt Date: 20150429
  Transmission Date: 20150821
  Serious: Yes (Hospitalization, Other)
  Sender: FDA-Public Use
  Company Number: JP-ROCHE-1471277

PATIENT
  Age: 49 Year
  Sex: Male
  Weight: 48 kg

DRUGS (8)
  1. CRESTOR [Concomitant]
     Active Substance: ROSUVASTATIN CALCIUM
     Route: 048
     Dates: start: 20140802, end: 20141021
  2. MICARDIS [Concomitant]
     Active Substance: TELMISARTAN
     Indication: HYPERTENSION
     Route: 065
     Dates: start: 20140802
  3. BAYASPIRIN [Concomitant]
     Active Substance: ASPIRIN
     Indication: CHORIORETINOPATHY
     Route: 065
     Dates: start: 20140318, end: 20141015
  4. METGLUCO [Concomitant]
     Active Substance: METFORMIN HYDROCHLORIDE
     Indication: DIABETES MELLITUS
     Route: 065
     Dates: start: 20150110
  5. LUCENTIS [Suspect]
     Active Substance: RANIBIZUMAB
     Indication: DIABETIC RETINAL OEDEMA
     Dosage: LAST DOSE PRIOR TO THE EVENT: 23/JUL/2014
     Route: 050
     Dates: start: 20140430
  6. LUCENTIS [Suspect]
     Active Substance: RANIBIZUMAB
     Route: 050
     Dates: start: 20140723, end: 20140723
  7. NESINA [Concomitant]
     Active Substance: ALOGLIPTIN BENZOATE
     Indication: DIABETES MELLITUS
     Route: 065
     Dates: start: 20140802
  8. CARNACULIN [Concomitant]
     Active Substance: KALLIDINOGENASE
     Indication: CHORIORETINOPATHY
     Route: 065
     Dates: start: 20130719

REACTIONS (5)
  - Carotid artery stenosis [Not Recovered/Not Resolved]
  - Thrombotic cerebral infarction [Recovered/Resolved]
  - Musculoskeletal disorder [Unknown]
  - Cerebral artery stenosis [Not Recovered/Not Resolved]
  - Hemiplegia [Unknown]

NARRATIVE: CASE EVENT DATE: 20140922
